FAERS Safety Report 9120220 (Version 2)
Quarter: 2013Q1

REPORT INFORMATION
  Report Type: Spontaneous
  Country: US (occurrence: US)
  Receive Date: 20130226
  Receipt Date: 20130314
  Transmission Date: 20140127
  Serious: No
  Sender: FDA-Public Use
  Company Number: US-PFIZER INC-2013068132

PATIENT
  Age: 55 Year
  Sex: Female

DRUGS (2)
  1. XELJANZ [Suspect]
     Indication: RHEUMATOID ARTHRITIS
     Dosage: 5 MG, 2X/DAY
     Route: 048
     Dates: start: 201301
  2. XELJANZ [Suspect]
     Dosage: 5 MG, 2X/DAY
     Route: 048
     Dates: start: 201302

REACTIONS (9)
  - Malaise [Unknown]
  - Sinusitis [Unknown]
  - Fungal infection [Unknown]
  - Cough [Unknown]
  - Gait disturbance [Unknown]
  - Pain [Unknown]
  - Rhinorrhoea [Unknown]
  - Dyspnoea [Unknown]
  - Headache [Unknown]
